FAERS Safety Report 12420902 (Version 2)
Quarter: 2016Q4

REPORT INFORMATION
  Report Type: Report from Study
  Country: US (occurrence: US)
  Receive Date: 20160531
  Receipt Date: 20161114
  Transmission Date: 20170207
  Serious: Yes (Other)
  Sender: FDA-Public Use
  Company Number: US-AMGEN-USASL2016066864

PATIENT
  Age: 51 Year
  Sex: Female

DRUGS (1)
  1. ENBREL [Suspect]
     Active Substance: ETANERCEPT
     Indication: PRODUCT USED FOR UNKNOWN INDICATION
     Dosage: UNK
     Route: 065
     Dates: end: 2016

REACTIONS (6)
  - Arthropathy [Unknown]
  - Tooth disorder [Unknown]
  - Malaise [Unknown]
  - Endodontic procedure [Unknown]
  - Drug ineffective [Unknown]
  - Shoulder operation [Unknown]

NARRATIVE: CASE EVENT DATE: 2016
